FAERS Safety Report 11109620 (Version 1)
Quarter: 2015Q2

REPORT INFORMATION
  Report Type: Spontaneous
  Country: US (occurrence: US)
  Receive Date: 20150513
  Receipt Date: 20150513
  Transmission Date: 20150821
  Serious: Yes (Other)
  Sender: FDA-Public Use
  Company Number: US-HORIZON-DUE-0025-2015

PATIENT
  Age: 60 Year
  Sex: Male

DRUGS (1)
  1. DUEXIS [Suspect]
     Active Substance: FAMOTIDINE\IBUPROFEN
     Dates: start: 20150430

REACTIONS (1)
  - Haematochezia [Unknown]
